FAERS Safety Report 8069570-9 (Version None)
Quarter: 2012Q1

REPORT INFORMATION
  Report Type: 
  Country: None (occurrence: None)
  Receive Date: 20120119
  Receipt Date: 20120116
  Transmission Date: 20120608
  Serious: Yes (Life-Threatening, Hospitalization)
  Sender: FDA-Public Use
  Company Number: 201101049

PATIENT
  Age: 67 Year
  Sex: Male

DRUGS (2)
  1. XIAFLEX [Suspect]
     Indication: DUPUYTREN'S CONTRACTURE
     Dosage: 0.58 MG, 1 IN 1 D, INTRALESIONAL
     Route: 026
     Dates: start: 20101117, end: 20101117
  2. LOW DOSE ASPIRIN (ACETYLSALICYLIC ACID) [Concomitant]

REACTIONS (1)
  - PULMONARY EMBOLISM [None]
